FAERS Safety Report 18946694 (Version 2)
Quarter: 2021Q1

REPORT INFORMATION
  Report Type: Spontaneous
  Country: AU (occurrence: AU)
  Receive Date: 20210226
  Receipt Date: 20210305
  Transmission Date: 20210420
  Serious: Yes (Other)
  Sender: FDA-Public Use
  Company Number: AU-JNJFOC-20210230129

PATIENT
  Age: 34 Year
  Sex: Male

DRUGS (9)
  1. METOPROLOL. [Concomitant]
     Active Substance: METOPROLOL
     Indication: RIGHT-TO-LEFT CARDIAC SHUNT
  2. TRACLEER [Suspect]
     Active Substance: BOSENTAN
     Indication: PULMONARY HYPERTENSION
     Route: 048
  3. WARFARIN [Concomitant]
     Active Substance: WARFARIN
     Indication: VENTRICULAR SEPTAL DEFECT
  4. SILDENAFIL. [Suspect]
     Active Substance: SILDENAFIL
     Indication: RIGHT-TO-LEFT CARDIAC SHUNT
  5. SILDENAFIL. [Suspect]
     Active Substance: SILDENAFIL
     Indication: VENTRICULAR SEPTAL DEFECT
  6. TRACLEER [Suspect]
     Active Substance: BOSENTAN
     Indication: VENTRICULAR SEPTAL DEFECT
  7. TRACLEER [Suspect]
     Active Substance: BOSENTAN
     Indication: RIGHT-TO-LEFT CARDIAC SHUNT
  8. WARFARIN [Concomitant]
     Active Substance: WARFARIN
     Indication: RIGHT-TO-LEFT CARDIAC SHUNT
  9. METOPROLOL. [Concomitant]
     Active Substance: METOPROLOL
     Indication: VENTRICULAR SEPTAL DEFECT

REACTIONS (6)
  - Retinal vascular disorder [Not Recovered/Not Resolved]
  - Visual field defect [Recovering/Resolving]
  - Hypotension [Unknown]
  - Retinal vascular disorder [Recovering/Resolving]
  - Retinal oedema [Recovered/Resolved]
  - Maculopathy [Recovered/Resolved]
